FAERS Safety Report 21017313 (Version 1)
Quarter: 2022Q2

REPORT INFORMATION
  Report Type: Spontaneous
  Country: US (occurrence: None)
  Receive Date: 20220627
  Receipt Date: 20220627
  Transmission Date: 20220721
  Serious: Yes (Disabling)
  Sender: FDA-Public Use
  Company Number: None

PATIENT
  Age: 31 Year
  Sex: Female
  Weight: 48.6 kg

DRUGS (1)
  1. GADOLINIUM [Suspect]
     Active Substance: GADOLINIUM
     Indication: Magnetic resonance imaging head
     Dates: start: 20220413

REACTIONS (5)
  - Toxicity to various agents [None]
  - Contrast media reaction [None]
  - Exposure via breast milk [None]
  - Insurance issue [None]
  - Product complaint [None]

NARRATIVE: CASE EVENT DATE: 20220413
